FAERS Safety Report 5853939-4 (Version None)
Quarter: 2008Q3

REPORT INFORMATION
  Report Type: 
  Country: None (occurrence: None)
  Receive Date: 20080822
  Receipt Date: 20080813
  Transmission Date: 20090109
  Serious: Yes (Hospitalization, Disabling)
  Sender: FDA-Public Use
  Company Number: B0526947A

PATIENT
  Age: 61 Year
  Sex: Male

DRUGS (4)
  1. KIVEXA [Suspect]
     Indication: DRUG USE FOR UNKNOWN INDICATION
     Route: 065
     Dates: start: 20080619, end: 20080624
  2. SEPTRIN [Suspect]
     Indication: DRUG USE FOR UNKNOWN INDICATION
     Dosage: 960MG PER DAY
     Dates: start: 20080619, end: 20080624
  3. EFAVIRENZ [Concomitant]
     Indication: DRUG USE FOR UNKNOWN INDICATION
     Route: 065
     Dates: start: 20080619, end: 20080624
  4. FLUCONAZOLE [Concomitant]
     Dates: start: 20080619

REACTIONS (2)
  - LYMPHOMA [None]
  - PANCREATITIS ACUTE [None]
